FAERS Safety Report 8789585 (Version 3)
Quarter: 2013Q1

REPORT INFORMATION
  Report Type: Spontaneous
  Country: US (occurrence: None)
  Receive Date: 20120905
  Receipt Date: 20121019
  Transmission Date: 20140127
  Serious: Yes (Hospitalization)
  Sender: FDA-Public Use
  Company Number: USA/USA/12/0025551

PATIENT
  Age: 56 Year
  Sex: Male
  Weight: 88.45 kg

DRUGS (8)
  1. LEVOFLOXACIN [Suspect]
     Indication: INFLUENZA
     Route: 048
     Dates: start: 20120811, end: 201208
  2. LEVOFLOXACIN [Suspect]
     Route: 048
     Dates: start: 20120811, end: 201208
  3. GLIMEPIRIDE (GLIMEPIRIDE) [Concomitant]
  4. MOEXIPRIL [Concomitant]
  5. GLUCOPHAGE [Concomitant]
  6. CRESTOR (ROSUVASTATIN CALCIUM) [Concomitant]
  7. LAMOTRIGINE TABLETS (LAMOTRIGINE) [Concomitant]
  8. CYMBALTA (DULOXETINE HYDROCHLORIDE) [Concomitant]

REACTIONS (29)
  - Psychiatric symptom [None]
  - Vomiting [None]
  - Confusional state [None]
  - Anxiety [None]
  - Frustration [None]
  - Tachyphrenia [None]
  - Restlessness [None]
  - Abnormal behaviour [None]
  - Disorientation [None]
  - Cognitive disorder [None]
  - Thinking abnormal [None]
  - Parosmia [None]
  - Fear [None]
  - Hearing impaired [None]
  - Insomnia [None]
  - Disturbance in attention [None]
  - Logorrhoea [None]
  - Nausea [None]
  - Crying [None]
  - Delusion [None]
  - Agitation [None]
  - Thinking abnormal [None]
  - Anger [None]
  - Mood swings [None]
  - Hyperacusis [None]
  - Stupor [None]
  - Depression [None]
  - Nervousness [None]
  - Hallucination [None]
